FAERS Safety Report 7167349-3 (Version None)
Quarter: 2010Q4

REPORT INFORMATION
  Report Type: 
  Country: None (occurrence: None)
  Receive Date: 20101216
  Receipt Date: 20101210
  Transmission Date: 20110411
  Serious: Yes (Hospitalization)
  Sender: FDA-Public Use
  Company Number: US-BRISTOL-MYERS SQUIBB COMPANY-15424948

PATIENT
  Age: 59 Year
  Sex: Female

DRUGS (1)
  1. MITOMYCIN [Suspect]
     Indication: BLADDER NEOPLASM SURGERY
     Dosage: 40MG IN 20ML OF STERILE DILUENT
     Route: 043

REACTIONS (1)
  - EOSINOPHILIC CYSTITIS [None]
